FAERS Safety Report 18858219 (Version 1)
Quarter: 2021Q1

REPORT INFORMATION
  Report Type: Spontaneous
  Country: US (occurrence: US)
  Receive Date: 20210205
  Receipt Date: 20210205
  Transmission Date: 20210420
  Serious: Yes (Death)
  Sender: FDA-Public Use
  Company Number: None

PATIENT
  Age: 65 Year
  Sex: Female
  Weight: 80 kg

DRUGS (2)
  1. RECOTHROM [Suspect]
     Active Substance: THROMBIN ALFA
     Indication: SURGERY
     Dosage: ?          OTHER FREQUENCY:ONCE;?
     Route: 061
     Dates: start: 20210112
  2. LEVOTHYROXINE 50 MCG [Concomitant]
     Active Substance: LEVOTHYROXINE

REACTIONS (12)
  - Brain herniation [None]
  - Pulseless electrical activity [None]
  - Cardiac arrest [None]
  - Embolism [None]
  - Intracardiac thrombus [None]
  - Right-to-left cardiac shunt [None]
  - Pulmonary embolism [None]
  - Cardiac ventricular thrombosis [None]
  - Ventricular fibrillation [None]
  - Brain injury [None]
  - Venous haemorrhage [None]
  - Hypotension [None]

NARRATIVE: CASE EVENT DATE: 20210112
